FAERS Safety Report 7802797-7 (Version None)
Quarter: 2011Q4

REPORT INFORMATION
  Report Type: 
  Country: None (occurrence: None)
  Receive Date: 20111007
  Receipt Date: 20111003
  Transmission Date: 20120403
  Serious: Yes (Other)
  Sender: FDA-Public Use
  Company Number: US-PFIZER INC-2011190938

PATIENT
  Sex: Female
  Weight: 62.132 kg

DRUGS (6)
  1. ALBUTAMOL [Concomitant]
     Dosage: 2 PUFFS AS NEEDED
     Route: 055
  2. PROAIR HFA [Concomitant]
     Indication: ASTHMA
     Dosage: UNK
  3. DARVOCET [Suspect]
     Indication: BACK PAIN
     Dosage: UNK
     Route: 048
  4. NICOTROL [Suspect]
     Indication: SMOKING CESSATION THERAPY
     Dosage: 4 MG, UNK
     Dates: start: 20040101
  5. MULTI-VITAMINS [Concomitant]
     Dosage: UNK
  6. ADVAIR DISKUS 100/50 [Suspect]
     Indication: ASTHMA
     Dosage: 250/50 MCG, 1 PUFF TWICE DAILY
     Dates: start: 20110101

REACTIONS (8)
  - DYSPNOEA [None]
  - NICOTINE DEPENDENCE [None]
  - STRESS [None]
  - HYPERPHAGIA [None]
  - DRUG INEFFECTIVE [None]
  - BLOOD CHOLESTEROL INCREASED [None]
  - WEIGHT INCREASED [None]
  - MYOCARDIAL INFARCTION [None]
